FAERS Safety Report 18913423 (Version 1)
Quarter: 2021Q1

REPORT INFORMATION
  Report Type: Spontaneous
  Country: CA (occurrence: CA)
  Receive Date: 20210218
  Receipt Date: 20210218
  Transmission Date: 20210420
  Serious: Yes (Life-Threatening, Hospitalization)
  Sender: FDA-Public Use
  Company Number: CA-BAUSCH-BL-2021-005033

PATIENT
  Sex: Male

DRUGS (1)
  1. NABILONE [Suspect]
     Active Substance: NABILONE
     Indication: POST-TRAUMATIC STRESS DISORDER
     Route: 065

REACTIONS (3)
  - Somnolence [Unknown]
  - Cardiac disorder [Unknown]
  - Drug withdrawal syndrome [Unknown]
